FAERS Safety Report 4332828-0 (Version None)
Quarter: 2004Q1

REPORT INFORMATION
  Report Type: 
  Country: None (occurrence: None)
  Receive Date: 20040330
  Receipt Date: 20040311
  Transmission Date: 20041129
  Serious: Yes (Hospitalization)
  Sender: FDA-Public Use
  Company Number: A02200400921

PATIENT
  Age: 33 Year
  Sex: Female

DRUGS (3)
  1. PLAQUENIL [Suspect]
     Dosage: 400 MG, OD, ORAL
     Route: 048
     Dates: start: 20031120, end: 20031207
  2. ACETYLSALICYLIC ACID SRT [Suspect]
     Dosage: 75 MG OD, ORAL
     Route: 048
     Dates: start: 20031120, end: 20031207
  3. TOPLEXIL     (OXOMEMAZINJE/GUAIFENESINE) [Suspect]
     Dosage: 1 DF OD  SYRUP

REACTIONS (4)
  - ALANINE AMINOTRANSFERASE INCREASED [None]
  - ASTHENIA [None]
  - BLOOD ALKALINE PHOSPHATASE INCREASED [None]
  - LEUKOCYTOCLASTIC VASCULITIS [None]
